FAERS Safety Report 16085247 (Version 1)
Quarter: 2019Q2

REPORT INFORMATION
  Report Type: Spontaneous
  Country: US (occurrence: US)
  Receive Date: 20190318
  Receipt Date: 20190318
  Transmission Date: 20190711
  Serious: Yes (Disabling, Other)
  Sender: FDA-Public Use
  Company Number: None

PATIENT
  Age: 56 Year
  Sex: Male
  Weight: 78.75 kg

DRUGS (1)
  1. LOSARTAN POTASSIUM TAB, USP 50MG [Suspect]
     Active Substance: LOSARTAN POTASSIUM
     Indication: HYPERTENSION
     Dosage: ?          QUANTITY:90 TABLET(S);?
     Route: 048
     Dates: start: 20160131, end: 20190318

REACTIONS (5)
  - Headache [None]
  - Fatigue [None]
  - Suspected product contamination [None]
  - Precancerous mucosal lesion [None]
  - Back pain [None]

NARRATIVE: CASE EVENT DATE: 20170901
